FAERS Safety Report 14911656 (Version 1)
Quarter: 2018Q2

REPORT INFORMATION
  Report Type: Spontaneous
  Country: US (occurrence: US)
  Receive Date: 20180518
  Receipt Date: 20180518
  Transmission Date: 20180711
  Serious: No
  Sender: FDA-Public Use
  Company Number: US-APOTEX-2017AP019614

PATIENT
  Age: 35 Year
  Sex: Female

DRUGS (10)
  1. FENTANYL                           /00174602/ [Suspect]
     Active Substance: FENTANYL
     Indication: BREAKTHROUGH PAIN
     Dosage: 14 ML/H
     Route: 042
  2. MORPHINE [Suspect]
     Active Substance: MORPHINE
     Indication: PAIN
  3. LORAZEPAM. [Suspect]
     Active Substance: LORAZEPAM
     Indication: ANXIOLYTIC THERAPY
     Dosage: PRN DOSING
     Route: 065
  4. LORAZEPAM. [Suspect]
     Active Substance: LORAZEPAM
     Indication: PAIN
  5. BUPIVACAINE. [Suspect]
     Active Substance: BUPIVACAINE
     Indication: EPIDURAL ANALGESIA
     Dosage: 0.062 %, UNK
     Route: 042
  6. BUPIVACAINE. [Suspect]
     Active Substance: BUPIVACAINE
     Indication: BREAKTHROUGH PAIN
     Dosage: 0.125 %, UNK
     Route: 065
  7. BUSPIPRONE HYDROCHLORIDE TABLETS USP [Suspect]
     Active Substance: BUSPIRONE HYDROCHLORIDE
     Indication: PAIN
  8. BUSPIPRONE HYDROCHLORIDE TABLETS USP [Suspect]
     Active Substance: BUSPIRONE HYDROCHLORIDE
     Indication: ANXIOLYTIC THERAPY
     Dosage: UNK
     Route: 065
  9. FENTANYL                           /00174602/ [Suspect]
     Active Substance: FENTANYL
     Indication: EPIDURAL ANALGESIA
     Dosage: 13 ?G PER MINUTE AT 16 ML/H
     Route: 065
  10. MORPHINE [Suspect]
     Active Substance: MORPHINE
     Indication: ANXIOLYTIC THERAPY
     Dosage: UNK UNK, PRN
     Route: 065

REACTIONS (1)
  - Exposure during pregnancy [Unknown]
